FAERS Safety Report 5219046-9 (Version None)
Quarter: 2007Q1

REPORT INFORMATION
  Report Type: 
  Country: None (occurrence: None)
  Receive Date: 20070124
  Receipt Date: 20070124
  Transmission Date: 20070707
  Serious: Yes (Hospitalization)
  Sender: FDA-Public Use
  Company Number: None

PATIENT
  Age: 28 Year
  Sex: Male
  Weight: 72.4 kg

DRUGS (1)
  1. CARISOPRODOL [Suspect]
     Dosage: NA

REACTIONS (7)
  - EOSINOPHIL COUNT INCREASED [None]
  - NAUSEA [None]
  - NEPHRITIS [None]
  - PYREXIA [None]
  - RASH [None]
  - RENAL IMPAIRMENT [None]
  - VOMITING [None]
